FAERS Safety Report 7903990-5 (Version None)
Quarter: 2011Q4

REPORT INFORMATION
  Report Type: 
  Country: None (occurrence: None)
  Receive Date: 20111109
  Receipt Date: 20111028
  Transmission Date: 20120403
  Serious: Yes (Other)
  Sender: FDA-Public Use
  Company Number: AU-SANOFI-AVENTIS-2011SA073425

PATIENT
  Age: 50 Year
  Sex: Male

DRUGS (10)
  1. ZOLPIDEM [Suspect]
     Route: 065
  2. CIPRO [Interacting]
     Indication: ANTIBIOTIC THERAPY
     Route: 065
  3. ZOPICLONE [Concomitant]
     Route: 065
  4. FLUOXETINE HCL [Interacting]
     Route: 065
  5. ALL OTHER THERAPEUTIC PRODUCTS [Interacting]
     Route: 065
  6. METOCLOPRAMIDE HYDROCHLORIDE [Concomitant]
     Route: 065
  7. VENLAFAXINE [Interacting]
     Route: 065
  8. DIAZEPAM [Concomitant]
     Route: 065
  9. AMITRIPTYLINE HCL [Interacting]
     Route: 065
  10. VALPROATE SODIUM [Interacting]
     Route: 065

REACTIONS (4)
  - DRUG INTERACTION [None]
  - HOMICIDE [None]
  - SOMNAMBULISM [None]
  - SEROTONIN SYNDROME [None]
